FAERS Safety Report 12890155 (Version 1)
Quarter: 2016Q4

REPORT INFORMATION
  Report Type: Spontaneous
  Country: AU (occurrence: AU)
  Receive Date: 20161027
  Receipt Date: 20161027
  Transmission Date: 20170207
  Serious: Yes (Hospitalization)
  Sender: FDA-Public Use
  Company Number: AU-NAPPMUNDI-GBR-2016-0041262

PATIENT
  Age: 77 Year
  Sex: Male

DRUGS (2)
  1. HALOPERIDOL. [Concomitant]
     Active Substance: HALOPERIDOL
     Dosage: 0.5 MG, DAILY
  2. NORSPAN [Suspect]
     Active Substance: BUPRENORPHINE
     Indication: PAIN
     Dosage: 5 MCG, Q1H
     Route: 062
     Dates: start: 20161011, end: 20161017

REACTIONS (1)
  - Unresponsive to stimuli [Not Recovered/Not Resolved]

NARRATIVE: CASE EVENT DATE: 20161017
